FAERS Safety Report 5167800-4 (Version None)
Quarter: 2006Q4

REPORT INFORMATION
  Report Type: 
  Country: None (occurrence: None)
  Receive Date: 20061208
  Receipt Date: 20060629
  Transmission Date: 20070319
  Serious: Yes (Other)
  Sender: FDA-Public Use
  Company Number: PHNU2006DE02415

PATIENT
  Age: 45 Year
  Sex: Female

DRUGS (1)
  1. CO-DIOVAN [Suspect]
     Indication: HYPERTENSION
     Dosage: 1 DF, QD
     Route: 048
     Dates: end: 20061016

REACTIONS (4)
  - BRONCHITIS [None]
  - LUNG INFILTRATION [None]
  - PLEURISY [None]
  - PNEUMONITIS [None]
